FAERS Safety Report 4826265-X (Version None)
Quarter: 2005Q4

REPORT INFORMATION
  Report Type: 
  Country: None (occurrence: None)
  Receive Date: 20051111
  Receipt Date: 20051102
  Transmission Date: 20060501
  Serious: Yes (Hospitalization, Other)
  Sender: FDA-Public Use
  Company Number: PHBS2005JP16269

PATIENT
  Age: 50 Year
  Sex: 0

DRUGS (3)
  1. DIOVAN [Suspect]
     Indication: HYPERTENSION
     Dosage: UNK, UNK
     Route: 048
     Dates: start: 20031001
  2. ASPIRIN [Concomitant]
     Route: 048
  3. PANALDINE [Concomitant]
     Route: 048

REACTIONS (5)
  - GLOMERULONEPHRITIS MEMBRANOUS [None]
  - LYMPHOCYTE STIMULATION TEST POSITIVE [None]
  - NEPHRITIS INTERSTITIAL [None]
  - PROTEINURIA [None]
  - RENAL IMPAIRMENT [None]
